FAERS Safety Report 8887855 (Version 3)
Quarter: 2012Q4

REPORT INFORMATION
  Report Type: 
  Country: US (occurrence: US)
  Receive Date: 20121106
  Receipt Date: 20121231
  Transmission Date: 20130627
  Serious: Yes (Hospitalization)
  Sender: FDA-Public Use
  Company Number: US-BIOGENIDEC-2012BI049229

PATIENT
  Age: 53 Year
  Sex: Female

DRUGS (3)
  1. AVONEX [Suspect]
     Indication: MULTIPLE SCLEROSIS
     Route: 030
     Dates: start: 20000828
  2. AVONEX [Suspect]
     Indication: MULTIPLE SCLEROSIS
     Route: 030
     Dates: start: 20060501, end: 201208
  3. AVONEX [Suspect]
     Indication: MULTIPLE SCLEROSIS
     Dates: start: 2012

REACTIONS (7)
  - Spinal column stenosis [Recovered/Resolved]
  - Scoliosis [Unknown]
  - Intervertebral disc protrusion [Recovered/Resolved]
  - Wound infection staphylococcal [Recovered/Resolved]
  - Back pain [Not Recovered/Not Resolved]
  - Sciatica [Unknown]
  - Migraine with aura [Not Recovered/Not Resolved]
